FAERS Safety Report 9361290 (Version 1)
Quarter: 2013Q2

REPORT INFORMATION
  Report Type: Spontaneous
  Country: FR (occurrence: FR)
  Receive Date: 20130621
  Receipt Date: 20130621
  Transmission Date: 20140414
  Serious: Yes (Hospitalization)
  Sender: FDA-Public Use
  Company Number: FR-TEVA-411696ISR

PATIENT
  Age: 42 Year
  Sex: Male

DRUGS (1)
  1. BUPRENORPHINE [Suspect]
     Indication: INTENTIONAL DRUG MISUSE
     Dosage: 8 MILLIGRAM DAILY; 8 MG/DAY (AT TIME OF ADMISSION)
     Route: 045

REACTIONS (3)
  - Hepatitis [Recovered/Resolved]
  - Renal failure [Recovered/Resolved]
  - Intentional drug misuse [Unknown]
